FAERS Safety Report 4274590-6 (Version None)
Quarter: 2004Q1

REPORT INFORMATION
  Report Type: 
  Country: None (occurrence: None)
  Receive Date: 20040120
  Receipt Date: 20040120
  Transmission Date: 20041129
  Serious: Yes (Disabling)
  Sender: FDA-Public Use
  Company Number: None

PATIENT
  Age: 49 Year
  Sex: Female
  Weight: 68.0396 kg

DRUGS (2)
  1. LUPRON [Suspect]
     Indication: HYSTEROSCOPY
     Dosage: LUPRON 1 INJECTI SUBCUTANEOUS
     Route: 058
     Dates: start: 20010419, end: 20010419
  2. LUPRON [Suspect]
     Indication: PREOPERATIVE CARE
     Dosage: LUPRON 1 INJECTI SUBCUTANEOUS
     Route: 058
     Dates: start: 20010419, end: 20010419

REACTIONS (9)
  - ACTIVITIES OF DAILY LIVING IMPAIRED [None]
  - FEELING OF DESPAIR [None]
  - IMPAIRED WORK ABILITY [None]
  - INSOMNIA [None]
  - MARITAL PROBLEM [None]
  - MUSCULAR WEAKNESS [None]
  - MUSCULOSKELETAL STIFFNESS [None]
  - POLYMYALGIA [None]
  - RED BLOOD CELL SEDIMENTATION RATE INCREASED [None]
